FAERS Safety Report 9701933 (Version 3)
Quarter: 2014Q2

REPORT INFORMATION
  Report Type: Spontaneous
  Country: CN (occurrence: CN)
  Receive Date: 20131121
  Receipt Date: 20140612
  Transmission Date: 20141212
  Serious: Yes (Other)
  Sender: FDA-Public Use
  Company Number: CN-JNJFOC-20130316715

PATIENT
  Age: 11 Year
  Sex: Female
  Weight: 40 kg

DRUGS (4)
  1. REMICADE [Suspect]
     Indication: RHEUMATOID ARTHRITIS
     Route: 042
     Dates: start: 20130222
  2. REMICADE [Suspect]
     Indication: RHEUMATOID ARTHRITIS
     Dosage: 2ND INFUSION (TOTAL RECEIVED DOSE 200MG)
     Route: 042
     Dates: start: 20130320, end: 20130320
  3. DEXAMETHASONE [Concomitant]
     Indication: PREMEDICATION
     Route: 042
     Dates: start: 20130320
  4. METHOTREXATE [Concomitant]
     Indication: RHEUMATOID ARTHRITIS
     Route: 065
     Dates: start: 20130222

REACTIONS (5)
  - Bronchospasm [Recovered/Resolved]
  - Infusion related reaction [Unknown]
  - Oropharyngeal pain [Recovered/Resolved]
  - Pruritus [Unknown]
  - Hyperhidrosis [Unknown]
